FAERS Safety Report 5584411-7 (Version None)
Quarter: 2007Q4

REPORT INFORMATION
  Report Type: 
  Country: None (occurrence: None)
  Receive Date: 20071130
  Receipt Date: 20061207
  Transmission Date: 20080405
  Serious: Yes (Disabling)
  Sender: FDA-Public Use
  Company Number: WAES 0612USA01272

PATIENT
  Age: 84 Year
  Sex: Female
  Weight: 45.3597 kg

DRUGS (1)
  1. FOSAMAX [Suspect]
     Dosage: PO
     Route: 048
     Dates: end: 20061201

REACTIONS (1)
  - OSTEONECROSIS [None]
